FAERS Safety Report 6595580-4 (Version None)
Quarter: 2010Q1

REPORT INFORMATION
  Report Type: 
  Country: None (occurrence: None)
  Receive Date: 20100222
  Receipt Date: 20100222
  Transmission Date: 20100710
  Serious: Yes (Other)
  Sender: FDA-Public Use
  Company Number: None

PATIENT
  Sex: Female
  Weight: 89.8122 kg

DRUGS (2)
  1. MORPHINE [Suspect]
     Indication: PAIN
     Dosage: IV (WHILE IN HOSPITAL - SURGERY)
     Route: 042
  2. ACAVAR 20/50 [Suspect]
     Indication: WEIGHT CONTROL
     Dosage: 1 TAB DAILY
     Dates: start: 20090301

REACTIONS (2)
  - RASH GENERALISED [None]
  - RESPIRATORY DISTRESS [None]
